FAERS Safety Report 7231436-1 (Version None)
Quarter: 2011Q1

REPORT INFORMATION
  Report Type: 
  Country: None (occurrence: None)
  Receive Date: 20110118
  Receipt Date: 20110113
  Transmission Date: 20110831
  Serious: Yes (Hospitalization)
  Sender: FDA-Public Use
  Company Number: FR-PFIZER INC-2009309387

PATIENT
  Age: 65 Year
  Sex: Female

DRUGS (11)
  1. DAFALGAN CODEINE [Suspect]
     Dosage: 4 DF A DAY
     Route: 048
     Dates: start: 20090928, end: 20091015
  2. DIAMICRON [Suspect]
     Dosage: 30 MG, 4X/DAY
     Route: 048
     Dates: end: 20091015
  3. ZELITREX [Concomitant]
  4. CALTRATE [Suspect]
     Dosage: 500 MG, 2X/DAY
     Route: 048
     Dates: end: 20091015
  5. BI-PROFENID [Suspect]
     Dosage: 2 DF A DAY
     Route: 048
     Dates: start: 20090928, end: 20091015
  6. TRANSIPEG [Suspect]
     Dosage: 2 DF A DAY
     Route: 048
     Dates: start: 20090928, end: 20091015
  7. VASTAREL [Suspect]
     Dosage: 35 MG, 2X/DAY
     Route: 048
     Dates: end: 20091015
  8. GLUCOPHAGE [Suspect]
     Dosage: 1000 MG, 4X/DAY
     Route: 048
     Dates: end: 20091015
  9. RANIPLEX [Suspect]
     Dosage: 300 MG A DAY
     Route: 048
     Dates: end: 20091015
  10. TAHOR [Suspect]
     Dosage: 40 MG, 1X/DAY
     Route: 048
     Dates: end: 20091015
  11. FLECAINE [Suspect]
     Dosage: 100 MG, 1X/DAY
     Route: 048
     Dates: end: 20091015

REACTIONS (3)
  - RENAL FAILURE [None]
  - DIARRHOEA [None]
  - VOMITING [None]
